FAERS Safety Report 7997397-2 (Version None)
Quarter: 2011Q4

REPORT INFORMATION
  Report Type: 
  Country: None (occurrence: None)
  Receive Date: 20111221
  Receipt Date: 20111215
  Transmission Date: 20120403
  Serious: Yes (Death)
  Sender: FDA-Public Use
  Company Number: US-CELGENEUS-163-21880-11122047

PATIENT
  Sex: Male

DRUGS (8)
  1. THEOPHYLLINE [Concomitant]
     Route: 065
  2. BUMETANIDE [Concomitant]
     Route: 065
  3. FINASTERIDE [Concomitant]
     Route: 065
  4. REVLIMID [Suspect]
     Dosage: 5 MILLIGRAM
     Route: 048
     Dates: start: 20100406
  5. PREDNISONE TAB [Concomitant]
     Route: 065
  6. SIMVASTATIN [Concomitant]
     Route: 065
  7. HYDROCHLOROTHIAZIDE [Concomitant]
     Route: 065
  8. TRAMADOL HCL [Concomitant]
     Route: 065

REACTIONS (1)
  - DEATH [None]
